FAERS Safety Report 13071887 (Version 1)
Quarter: 2016Q4

REPORT INFORMATION
  Report Type: Spontaneous
  Country: JP (occurrence: JP)
  Receive Date: 20161229
  Receipt Date: 20161229
  Transmission Date: 20170207
  Serious: Yes (Other)
  Sender: FDA-Public Use
  Company Number: JP-ASTRAZENECA-2016SF37496

PATIENT
  Age: 59 Year
  Sex: Female

DRUGS (1)
  1. MEROPEN [Suspect]
     Active Substance: MEROPENEM
     Route: 042

REACTIONS (1)
  - Seizure [Unknown]

NARRATIVE: CASE EVENT DATE: 201611
